FAERS Safety Report 5855737-4 (Version None)
Quarter: 2008Q3

REPORT INFORMATION
  Report Type: 
  Country: None (occurrence: None)
  Receive Date: 20080821
  Receipt Date: 20080821
  Transmission Date: 20090109
  Serious: No
  Sender: FDA-Public Use
  Company Number: None

PATIENT
  Age: 34 Year
  Sex: Male

DRUGS (6)
  1. METHYL MASTERDROL (ANABOLIC STEROID) [Suspect]
     Dates: start: 20060401, end: 20060701
  2. ATARAX [Concomitant]
  3. RESTORIL [Concomitant]
  4. DOXEPIN HCL [Concomitant]
  5. MORPHINE [Concomitant]
  6. IV CONTRAST [Concomitant]

REACTIONS (7)
  - ABDOMINAL PAIN UPPER [None]
  - ALANINE AMINOTRANSFERASE INCREASED [None]
  - ASPARTATE AMINOTRANSFERASE INCREASED [None]
  - BLOOD BILIRUBIN INCREASED [None]
  - CHOLESTASIS [None]
  - LIVER INJURY [None]
  - RENAL FAILURE [None]
